FAERS Safety Report 16188446 (Version 1)
Quarter: 2019Q2

REPORT INFORMATION
  Report Type: Spontaneous
  Country: US (occurrence: US)
  Receive Date: 20190412
  Receipt Date: 20190412
  Transmission Date: 20190711
  Serious: No
  Sender: FDA-Public Use
  Company Number: US-ACCORD-101049

PATIENT
  Age: 35 Year
  Sex: Female
  Weight: 58.97 kg

DRUGS (1)
  1. SPIRONOLACTONE ACCORD [Suspect]
     Active Substance: SPIRONOLACTONE
     Indication: ECZEMA
     Dates: start: 201812, end: 201812

REACTIONS (3)
  - Off label use [Unknown]
  - Condition aggravated [Unknown]
  - Pollakiuria [Unknown]
